FAERS Safety Report 8179804-8 (Version None)
Quarter: 2012Q1

REPORT INFORMATION
  Report Type: 
  Country: None (occurrence: None)
  Receive Date: 20120302
  Receipt Date: 20120223
  Transmission Date: 20120608
  Serious: Yes (Other)
  Sender: FDA-Public Use
  Company Number: US-BAYER-2011-020927

PATIENT
  Age: 35 Year
  Sex: Female
  Weight: 65.76 kg

DRUGS (6)
  1. IBUPROFEN (ADVIL) [Concomitant]
     Dosage: UNK UNK, PRN
     Dates: start: 20090301
  2. PHENTERMINE [Concomitant]
     Dosage: UNK
     Dates: start: 20090501
  3. YAZ [Suspect]
     Dosage: UNK
     Dates: start: 20070101, end: 20090101
  4. NEXIUM [Concomitant]
     Dosage: UNK
     Dates: start: 20090301
  5. YAZ [Suspect]
     Dosage: UNK
     Dates: start: 20080101, end: 20090101
  6. LORTAB [Concomitant]
     Dosage: UNK
     Dates: start: 20080101, end: 20090101

REACTIONS (7)
  - CHOLECYSTITIS CHRONIC [None]
  - MALAISE [None]
  - GALLBLADDER DISORDER [None]
  - EMOTIONAL DISTRESS [None]
  - INJURY [None]
  - PAIN [None]
  - ANXIETY [None]
